FAERS Safety Report 18668889 (Version 1)
Quarter: 2020Q4

REPORT INFORMATION
  Report Type: Spontaneous
  Country: US (occurrence: US)
  Receive Date: 20201228
  Receipt Date: 20201228
  Transmission Date: 20210114
  Serious: Yes (Hospitalization)
  Sender: FDA-Public Use
  Company Number: US-APOTEX-2020AP024789

PATIENT
  Age: 3 Year
  Sex: Male

DRUGS (1)
  1. GLYCOPYRROLATE. [Suspect]
     Active Substance: GLYCOPYRROLATE
     Indication: BRADYCARDIA
     Dosage: 0.1 MILLIGRAM
     Route: 065

REACTIONS (2)
  - Hypertension [Unknown]
  - Tachycardia [Unknown]
